FAERS Safety Report 17038202 (Version 4)
Quarter: 2020Q1

REPORT INFORMATION
  Report Type: Spontaneous
  Country: US (occurrence: US)
  Receive Date: 20191115
  Receipt Date: 20200106
  Transmission Date: 20200409
  Serious: Yes (Other)
  Sender: FDA-Public Use
  Company Number: US-JNJFOC-20191107533

PATIENT
  Age: 52 Year
  Sex: Male
  Weight: 104.42 kg

DRUGS (5)
  1. LOTENSIN [Concomitant]
     Active Substance: BENAZEPRIL HYDROCHLORIDE
     Indication: HYPERTENSION
  2. RISPERDAL CONSTA [Suspect]
     Active Substance: RISPERIDONE
     Indication: EMOTIONAL DISTRESS
     Route: 030
     Dates: start: 200401, end: 200909
  3. RISPERDAL CONSTA [Suspect]
     Active Substance: RISPERIDONE
     Indication: HOSTILITY
  4. PRILOSEC [Concomitant]
     Active Substance: OMEPRAZOLE MAGNESIUM
  5. ZYPREXA [Concomitant]
     Active Substance: OLANZAPINE

REACTIONS (5)
  - Joint swelling [Unknown]
  - Product use in unapproved indication [Unknown]
  - Off label use [Unknown]
  - Cellulitis [Unknown]
  - Breast enlargement [Not Recovered/Not Resolved]
